FAERS Safety Report 12302298 (Version 1)
Quarter: 2016Q2

REPORT INFORMATION
  Report Type: Spontaneous
  Country: US (occurrence: US)
  Receive Date: 20160425
  Receipt Date: 20160425
  Transmission Date: 20160815
  Serious: Yes (Other)
  Sender: FDA-Public Use
  Company Number: US-BAYER-2016-078197

PATIENT
  Age: 4 Year
  Sex: Female

DRUGS (1)
  1. COPPERTONE WATER BABIES SPF 55 [Suspect]
     Active Substance: AVOBENZONE\HOMOSALATE\OCTISALATE\OCTOCRYLENE\OXYBENZONE
     Dosage: UNK
     Route: 061
     Dates: start: 201604, end: 201604

REACTIONS (6)
  - Application site burn [Recovered/Resolved]
  - Skin exfoliation [Recovered/Resolved]
  - Erythema [Recovered/Resolved]
  - Dry skin [Recovered/Resolved]
  - Rash maculo-papular [Not Recovered/Not Resolved]
  - Facial pain [Recovered/Resolved]

NARRATIVE: CASE EVENT DATE: 201604
